FAERS Safety Report 10785417 (Version 1)
Quarter: 2015Q1

REPORT INFORMATION
  Report Type: Spontaneous
  Country: US (occurrence: None)
  Receive Date: 20150210
  Receipt Date: 20150210
  Transmission Date: 20150721
  Serious: Yes (Hospitalization)
  Sender: FDA-Public Use
  Company Number: None

PATIENT
  Age: 55 Year
  Sex: Female
  Weight: 81.65 kg

DRUGS (1)
  1. GAMUNEX-C [Suspect]
     Active Substance: HUMAN IMMUNOGLOBULIN G
     Dosage: EVERY 4 WEEKS??(2) 20G: LOT# A4GE400131, (1) 10G: A4GD400092, (1) 5G: 26NP5J1?20G: 26NNRX1 ?
     Route: 042
     Dates: start: 20120201, end: 20150126

REACTIONS (2)
  - Swollen tongue [None]
  - Infusion related reaction [None]

NARRATIVE: CASE EVENT DATE: 20150126
